FAERS Safety Report 6864508-1 (Version None)
Quarter: 2010Q3

REPORT INFORMATION
  Report Type: 
  Country: None (occurrence: None)
  Receive Date: 20100721
  Receipt Date: 20080521
  Transmission Date: 20110219
  Serious: Yes (Other)
  Sender: FDA-Public Use
  Company Number: US-PFIZER INC-2008029248

PATIENT
  Sex: Female

DRUGS (2)
  1. CHANTIX [Suspect]
     Dates: start: 20080101
  2. TYLENOL PM [Suspect]
     Indication: INSOMNIA

REACTIONS (6)
  - ARTHRALGIA [None]
  - BED REST [None]
  - DRUG INEFFECTIVE [None]
  - INSOMNIA [None]
  - MOANING [None]
  - TEARFULNESS [None]
